FAERS Safety Report 19540219 (Version 1)
Quarter: 2021Q3

REPORT INFORMATION
  Report Type: Spontaneous
  Country: PL (occurrence: PL)
  Receive Date: 20210714
  Receipt Date: 20210714
  Transmission Date: 20211014
  Serious: Yes (Hospitalization, Other)
  Sender: FDA-Public Use
  Company Number: PL-LUPIN PHARMACEUTICALS INC.-2021-11744

PATIENT
  Age: 63 Year
  Sex: Female

DRUGS (9)
  1. RISPERIDONE. [Suspect]
     Active Substance: RISPERIDONE
     Indication: HALLUCINATION
     Dosage: UNK
     Route: 065
  2. QUETIAPINE FUMARATE. [Suspect]
     Active Substance: QUETIAPINE FUMARATE
     Indication: HALLUCINATION
     Dosage: 25 MILLIGRAM, IN THE EVENING
     Route: 065
  3. PERAZINE [Suspect]
     Active Substance: PERAZINE
     Indication: HALLUCINATION
     Dosage: 150 MILLIGRAM, IN THE EVENING
     Route: 065
  4. TRAZODONE [Suspect]
     Active Substance: TRAZODONE HYDROCHLORIDE
     Indication: HALLUCINATION
     Dosage: UNK
     Route: 065
  5. TRAZODONE [Suspect]
     Active Substance: TRAZODONE HYDROCHLORIDE
     Indication: SLEEP DISORDER
     Dosage: 150 MILLIGRAM, ADMINISTERED TRAZODONE AT A DOSE FOUR TIMES MORE THAN THE PHYSICIAN RECOMMENDED
     Route: 065
  6. HYDROXYZINE [Concomitant]
     Active Substance: HYDROXYZINE HYDROCHLORIDE
     Indication: PRODUCT USED FOR UNKNOWN INDICATION
     Dosage: IN THE EVENING
     Route: 065
  7. BIPERIDEN [Concomitant]
     Active Substance: BIPERIDEN
     Indication: PRODUCT USED FOR UNKNOWN INDICATION
     Dosage: 2 MILLIGRAM, IN THE MORNING AND AFTERNOON
     Route: 065
  8. SULPIRIDE [Suspect]
     Active Substance: SULPIRIDE
     Indication: HALLUCINATION
     Dosage: 100 MILLIGRAM
     Route: 065
  9. MOCLOBEMIDE [Suspect]
     Active Substance: MOCLOBEMIDE
     Indication: HALLUCINATION
     Dosage: 150 MILLIGRAM
     Route: 065

REACTIONS (2)
  - Balance disorder [Unknown]
  - Long QT syndrome [Unknown]
